FAERS Safety Report 6445995-X (Version None)
Quarter: 2009Q4

REPORT INFORMATION
  Report Type: 
  Country: None (occurrence: None)
  Receive Date: 20091119
  Receipt Date: 20090626
  Transmission Date: 20100525
  Serious: No
  Sender: FDA-Public Use
  Company Number: A0793969A

PATIENT
  Age: 10 Year
  Sex: Male

DRUGS (1)
  1. WELLBUTRIN SR [Suspect]
     Indication: OPPOSITIONAL DEFIANT DISORDER
     Dosage: 100MG PER DAY
     Route: 048
     Dates: start: 20090501, end: 20090619

REACTIONS (3)
  - EYE SWELLING [None]
  - RASH GENERALISED [None]
  - URTICARIA [None]
